FAERS Safety Report 7901759 (Version 3)
Quarter: 2014Q1

REPORT INFORMATION
  Report Type: Spontaneous
  Country: US (occurrence: US)
  Receive Date: 20110415
  Receipt Date: 20140326
  Transmission Date: 20141002
  Serious: Yes (Hospitalization, Other)
  Sender: FDA-Public Use
  Company Number: US-ASTRAZENECA-2011SE19518

PATIENT
  Age: 63 Year
  Sex: Female
  Weight: 49 kg

DRUGS (17)
  1. CRESTOR [Suspect]
     Indication: BLOOD CHOLESTEROL ABNORMAL
     Route: 048
     Dates: start: 2011
  2. CRESTOR [Suspect]
     Indication: BLOOD CHOLESTEROL ABNORMAL
     Route: 048
     Dates: start: 201401, end: 20140123
  3. VALIUM [Concomitant]
     Indication: STRESS
     Route: 048
     Dates: start: 2012
  4. VALIUM [Concomitant]
     Indication: ANXIETY
     Route: 048
     Dates: start: 2012
  5. VALIUM [Concomitant]
     Indication: MUSCLE DISORDER
     Route: 048
     Dates: start: 2012
  6. CITALOPRAM [Concomitant]
     Indication: ANTIDEPRESSANT THERAPY
     Route: 048
  7. MOTRIN [Concomitant]
     Indication: PAIN
     Route: 048
  8. MOTRIN [Concomitant]
     Indication: ARTHRITIS
     Route: 048
  9. ASPIRIN [Concomitant]
     Indication: CARDIAC DISORDER
     Route: 048
     Dates: start: 2009
  10. ASPIRIN [Concomitant]
     Indication: ANTICOAGULANT THERAPY
     Route: 048
     Dates: start: 2009
  11. ASPIRIN [Concomitant]
     Indication: CARDIAC DISORDER
  12. ASPIRIN [Concomitant]
     Indication: ANTICOAGULANT THERAPY
  13. VIT D3 [Concomitant]
     Indication: BONE DISORDER
     Dosage: 1000 UNITS DAILY
     Route: 048
     Dates: start: 2010
  14. CALCIUM MAGNESIUM ZINC [Concomitant]
     Indication: BONE DISORDER
     Route: 048
     Dates: start: 2010
  15. DIAZEPAM [Concomitant]
  16. VITAMIN D [Concomitant]
  17. CALCIUM [Concomitant]

REACTIONS (17)
  - Fall [Unknown]
  - Joint dislocation [Unknown]
  - Spinal osteoarthritis [Not Recovered/Not Resolved]
  - Lower limb fracture [Unknown]
  - Hip fracture [Unknown]
  - Angle closure glaucoma [Unknown]
  - Hypersomnia [Unknown]
  - Limb discomfort [Unknown]
  - Weight decreased [Not Recovered/Not Resolved]
  - Hypophagia [Not Recovered/Not Resolved]
  - Body height decreased [Not Recovered/Not Resolved]
  - Neck pain [Not Recovered/Not Resolved]
  - Osteoporosis [Unknown]
  - Arthritis [Unknown]
  - Blood cholesterol increased [Unknown]
  - Intentional drug misuse [Not Recovered/Not Resolved]
  - Drug dose omission [Not Recovered/Not Resolved]
